FAERS Safety Report 24599077 (Version 3)
Quarter: 2025Q1

REPORT INFORMATION
  Report Type: Spontaneous
  Country: US (occurrence: US)
  Receive Date: 20241110
  Receipt Date: 20250301
  Transmission Date: 20250409
  Serious: No
  Sender: SANOFI AVENTIS
  Company Number: US-SA-2024SA311449

PATIENT
  Sex: Female

DRUGS (2)
  1. DUPIXENT [Suspect]
     Active Substance: DUPILUMAB
     Indication: Dermatitis atopic
     Dosage: 300 MG, QOW
     Route: 058
     Dates: start: 202308
  2. REZDIFFRA [Concomitant]
     Active Substance: RESMETIROM
     Indication: Hepatic steatosis

REACTIONS (5)
  - Confusional state [Recovered/Resolved]
  - Constipation [Recovered/Resolved]
  - Dry mouth [Unknown]
  - Headache [Unknown]
  - Dizziness [Unknown]
